FAERS Safety Report 6382508-5 (Version None)
Quarter: 2009Q3

REPORT INFORMATION
  Report Type: 
  Country: None (occurrence: None)
  Receive Date: 20090930
  Receipt Date: 20090924
  Transmission Date: 20100115
  Serious: Yes (Death)
  Sender: FDA-Public Use
  Company Number: JP-EISAI INC.-E3810-03169-SPO-JP

PATIENT
  Age: 50 Year
  Sex: Female

DRUGS (5)
  1. PARIET (RABEPRAZOLE) [Suspect]
     Route: 048
     Dates: start: 20090703, end: 20090707
  2. BASEN [Suspect]
     Indication: DIABETES MELLITUS
     Dosage: UNKNOWN
     Route: 048
     Dates: start: 20090703, end: 20090707
  3. DIOVAN [Concomitant]
     Indication: HYPERTENSION
     Dosage: UNKNOWN
     Route: 048
  4. AMLODIPINE [Concomitant]
     Indication: HYPERTENSION
     Dosage: UNKNOWN
     Route: 048
  5. PLAVIX [Concomitant]
     Dosage: UNKNOWN
     Route: 048

REACTIONS (1)
  - HEPATITIS FULMINANT [None]
